FAERS Safety Report 9350402 (Version 4)
Quarter: 2013Q3

REPORT INFORMATION
  Report Type: Spontaneous
  Country: US (occurrence: US)
  Receive Date: 20130617
  Receipt Date: 20130912
  Transmission Date: 20140515
  Serious: Yes (Other)
  Sender: FDA-Public Use
  Company Number: US-ELI_LILLY_AND_COMPANY-US201306002010

PATIENT
  Age: 62 Year
  Sex: Male

DRUGS (5)
  1. CYMBALTA [Suspect]
     Indication: NEUROPATHY PERIPHERAL
     Dosage: 120 MG, UNKNOWN
     Dates: start: 2006
  2. CYMBALTA [Suspect]
     Indication: PAIN
     Dosage: 60 MG, UNKNOWN
  3. CYMBALTA [Suspect]
     Indication: DEPRESSION
     Dosage: 90 MG, ONCE A DAY AT NIGHT
  4. CYMBALTA [Suspect]
     Dosage: 60 MG, UNKNOWN
  5. CYMBALTA [Suspect]
     Dosage: 90 MG, ONCE A DAY AT NIGHT

REACTIONS (4)
  - Prostate cancer [Unknown]
  - Tremor [Unknown]
  - Nervousness [Unknown]
  - Drug withdrawal syndrome [Unknown]
